FAERS Safety Report 7417861-4 (Version None)
Quarter: 2011Q2

REPORT INFORMATION
  Report Type: 
  Country: None (occurrence: None)
  Receive Date: 20110412
  Receipt Date: 20110412
  Transmission Date: 20111010
  Serious: No
  Sender: FDA-Public Use
  Company Number: None

PATIENT

DRUGS (1)
  1. HUMIRA [Suspect]

REACTIONS (7)
  - BURNING SENSATION [None]
  - RASH [None]
  - SKIN EXFOLIATION [None]
  - FUNGAL INFECTION [None]
  - PUSTULAR PSORIASIS [None]
  - CONDITION AGGRAVATED [None]
  - INJURY [None]
